FAERS Safety Report 8340975-1 (Version None)
Quarter: 2012Q2

REPORT INFORMATION
  Report Type: 
  Country: None (occurrence: None)
  Receive Date: 20120507
  Receipt Date: 20071119
  Transmission Date: 20120825
  Serious: Yes (Other)
  Sender: FDA-Public Use
  Company Number: US-ROCHE-GNE250064

PATIENT
  Sex: Female
  Weight: 75.364 kg

DRUGS (16)
  1. ADVAIR DISKUS 100/50 [Concomitant]
     Indication: ASTHMA
     Dosage: 1 UNK, BID
  2. QVAR 40 [Concomitant]
     Indication: PRODUCT USED FOR UNKNOWN INDICATION
  3. IMMUNOTHERAPY (ANTIGEN UNKNOWN) [Concomitant]
     Indication: PRODUCT USED FOR UNKNOWN INDICATION
  4. NASONEX [Concomitant]
     Indication: HYPERSENSITIVITY
     Dosage: 2 UNK, QD
     Route: 054
  5. METFORMIN HCL [Concomitant]
     Indication: PRODUCT USED FOR UNKNOWN INDICATION
  6. ZOLOFT [Concomitant]
     Indication: DEPRESSION
     Dosage: 100 MG, QD
     Route: 048
  7. ALBUTEROL [Concomitant]
     Indication: PRODUCT USED FOR UNKNOWN INDICATION
     Dosage: UNK, PRN
  8. LANTUS [Concomitant]
     Indication: DIABETES MELLITUS
     Dosage: 33 UNIT, QHS, DOSE=33 UNIT, DAILY DOSE=33 UNIT
     Route: 058
  9. HUMALOG [Concomitant]
     Dosage: UNK, PRN
     Route: 058
  10. XOLAIR [Suspect]
     Indication: ASTHMA
     Dosage: 375 UNK, Q2W
     Route: 058
  11. ASPIRIN [Concomitant]
     Indication: PRODUCT USED FOR UNKNOWN INDICATION
  12. LEVOSALBUTAMOL [Concomitant]
  13. NEXIUM [Concomitant]
     Indication: GASTROOESOPHAGEAL REFLUX DISEASE
     Dosage: 1 TABLET, BID, DOSE=1 TABLET, DAILY DOSE=2 TABLET
     Route: 048
  14. HUMALOG [Concomitant]
     Indication: DIABETES MELLITUS
     Dosage: 10 UNIT, TID, DOSE=10 UNIT, DAILY DOSE=30 UNIT
     Route: 058
  15. ALLEGRA [Concomitant]
     Indication: HYPERSENSITIVITY
     Dosage: 180 MG, BID
     Route: 048
  16. ACCUPRIL [Concomitant]
     Indication: PRODUCT USED FOR UNKNOWN INDICATION
     Dosage: 10 MG, QD
     Route: 048

REACTIONS (6)
  - MALAISE [None]
  - ANAPHYLACTIC REACTION [None]
  - CHEST DISCOMFORT [None]
  - PRURITUS [None]
  - COUGH [None]
  - RHINORRHOEA [None]
